FAERS Safety Report 8417982-3 (Version None)
Quarter: 2012Q2

REPORT INFORMATION
  Report Type: 
  Country: None (occurrence: None)
  Receive Date: 20120531
  Receipt Date: 20120515
  Transmission Date: 20120825
  Serious: Yes (Other)
  Sender: FDA-Public Use
  Company Number: DKLU1081114

PATIENT
  Age: 42 Year
  Sex: Female

DRUGS (5)
  1. THYROID TAB [Concomitant]
  2. MUSTARGEN [Suspect]
     Indication: HODGKIN'S DISEASE
  3. LEXAPRO (ESCITALOPRAM OCALATE) [Concomitant]
  4. CALCIUM/VITAMIN D (LEKOVIT CA) [Concomitant]
  5. LEVOTHYROXINE SODIUM [Concomitant]

REACTIONS (6)
  - HYPOXIA [None]
  - BREAST CANCER IN SITU [None]
  - FIBROSIS [None]
  - FATIGUE [None]
  - EXERCISE TOLERANCE DECREASED [None]
  - ATRIAL SEPTAL DEFECT [None]
